FAERS Safety Report 11935702 (Version 14)
Quarter: 2017Q2

REPORT INFORMATION
  Report Type: Report from Study
  Country: CA (occurrence: CA)
  Receive Date: 20160121
  Receipt Date: 20170601
  Transmission Date: 20170829
  Serious: Yes (Hospitalization, Other)
  Sender: FDA-Public Use
  Company Number: PHHY2014CA068265

PATIENT
  Age: 53 Year
  Sex: Female

DRUGS (10)
  1. DEXAMETHASONE. [Concomitant]
     Active Substance: DEXAMETHASONE
     Indication: PRODUCT USED FOR UNKNOWN INDICATION
     Dosage: X 4 DAYS
     Route: 065
     Dates: start: 20170405
  2. SANDOSTATIN LAR DEPOT [Suspect]
     Active Substance: OCTREOTIDE ACETATE
     Dosage: 30 MG, (EVERY 3 WEEKS)
     Route: 030
     Dates: start: 20161003
  3. SANDOSTATIN [Suspect]
     Active Substance: OCTREOTIDE ACETATE
     Indication: CARCINOID TUMOUR
     Route: 058
  4. SANDOSTATIN LAR DEPOT [Suspect]
     Active Substance: OCTREOTIDE ACETATE
     Dosage: 60 MG, (EVERY 3 WEEKS)
     Route: 030
  5. SANDOSTATIN LAR DEPOT [Suspect]
     Active Substance: OCTREOTIDE ACETATE
     Dosage: 30 MG (EVERY 3 WEEKS)
     Route: 030
  6. SANDOSTATIN LAR DEPOT [Suspect]
     Active Substance: OCTREOTIDE ACETATE
     Dosage: 30 MG, (EVERY 3 WEEKS)
     Route: 030
     Dates: start: 20161003
  7. SANDOSTATIN LAR DEPOT [Suspect]
     Active Substance: OCTREOTIDE ACETATE
     Dosage: 40 MG, (EVERY 3 WEEKS)
     Route: 030
  8. SANDOSTATIN LAR DEPOT [Suspect]
     Active Substance: OCTREOTIDE ACETATE
     Indication: CARCINOID TUMOUR
     Dosage: 20 MG, (EVERY 3 WEEKS)
     Route: 030
     Dates: start: 20140327, end: 20140509
  9. SANDOSTATIN LAR DEPOT [Suspect]
     Active Substance: OCTREOTIDE ACETATE
     Dosage: 30 MG, (EVERY 3 WEEKS)
     Route: 030
     Dates: start: 20150716, end: 20160518
  10. CLINDAMYCIN. [Concomitant]
     Active Substance: CLINDAMYCIN
     Indication: PRODUCT USED FOR UNKNOWN INDICATION
     Dosage: 300 MG, TID
     Route: 065

REACTIONS (29)
  - Gastrointestinal haemorrhage [Unknown]
  - Serum ferritin decreased [Unknown]
  - Syncope [Recovering/Resolving]
  - Malaise [Unknown]
  - Hepatic steatosis [Unknown]
  - Abdominal pain [Unknown]
  - Body temperature decreased [Unknown]
  - 5-hydroxyindolacetic acid in urine increased [Unknown]
  - Breast pain [Unknown]
  - Intestinal obstruction [Unknown]
  - Flushing [Unknown]
  - Back pain [Unknown]
  - Blood pressure systolic increased [Unknown]
  - Toothache [Recovered/Resolved]
  - Dizziness [Unknown]
  - Lethargy [Unknown]
  - Cold sweat [Unknown]
  - Hyperhidrosis [Unknown]
  - Diarrhoea [Unknown]
  - Constipation [Unknown]
  - Abdominal discomfort [Unknown]
  - Recurrent cancer [Unknown]
  - Abdominal distension [Unknown]
  - Gallbladder disorder [Unknown]
  - Head injury [Recovering/Resolving]
  - Concomitant disease aggravated [Unknown]
  - Inappropriate schedule of drug administration [Unknown]
  - Abdominal pain upper [Not Recovered/Not Resolved]
  - Muscle spasms [Unknown]

NARRATIVE: CASE EVENT DATE: 20150217
